FAERS Safety Report 16074472 (Version 4)
Quarter: 2020Q2

REPORT INFORMATION
  Report Type: Report from Study
  Country: US (occurrence: US)
  Receive Date: 20190314
  Receipt Date: 20200604
  Transmission Date: 20200713
  Serious: Yes (Hospitalization)
  Sender: FDA-Public Use
  Company Number: US-ACTELION-A-NJ2019-187406

PATIENT
  Sex: Female
  Weight: 63.04 kg

DRUGS (4)
  1. VELETRI [Suspect]
     Active Substance: EPOPROSTENOL
     Indication: PULMONARY ARTERIAL HYPERTENSION
     Dosage: 20 NG/KG, PER MIN
     Route: 042
  2. TADALAFIL. [Concomitant]
     Active Substance: TADALAFIL
  3. OPSUMIT [Suspect]
     Active Substance: MACITENTAN
     Indication: PULMONARY ARTERIAL HYPERTENSION
     Dosage: 10 MG, QD
     Route: 048
     Dates: start: 20190204
  4. LETAIRIS [Concomitant]
     Active Substance: AMBRISENTAN

REACTIONS (11)
  - Diarrhoea [Unknown]
  - Nausea [Unknown]
  - Vascular device infection [Unknown]
  - Catheter site pain [Unknown]
  - Malaise [Unknown]
  - Memory impairment [Unknown]
  - Cholecystectomy [Unknown]
  - Catheter site scab [Unknown]
  - Pain in jaw [Unknown]
  - Flushing [Unknown]
  - Product administration error [Unknown]
